FAERS Safety Report 9289883 (Version 2)
Quarter: 2013Q2

REPORT INFORMATION
  Report Type: Report from Study
  Country: CA (occurrence: CA)
  Receive Date: 20130515
  Receipt Date: 20130529
  Transmission Date: 20140414
  Serious: Yes (Other)
  Sender: FDA-Public Use
  Company Number: PHHY2013CA047729

PATIENT
  Age: 60 Year
  Sex: Female

DRUGS (5)
  1. CLOZARIL [Suspect]
     Indication: SCHIZOPHRENIA
     Dosage: 200 MG, QD
     Route: 048
     Dates: start: 20110314, end: 20130510
  2. CLOZARIL [Suspect]
     Dosage: UNK
     Dates: start: 20110317, end: 20130510
  3. COVERSYL                                /FRA/ [Concomitant]
     Dosage: UNK UKN, UNK
  4. DILANTIN                                /CAN/ [Concomitant]
     Dosage: UNK UKN, UNK
  5. AVENTYL [Concomitant]
     Dosage: UNK UKN, UNK

REACTIONS (2)
  - Viral infection [Recovered/Resolved]
  - Pneumonia [Recovered/Resolved]
